FAERS Safety Report 16414270 (Version 1)
Quarter: 2019Q2

REPORT INFORMATION
  Report Type: Report from Study
  Country: None (occurrence: RO)
  Receive Date: 20190611
  Receipt Date: 20190611
  Transmission Date: 20190711
  Serious: Yes (Hospitalization, Other)
  Sender: FDA-Public Use
  Company Number: RO-ABBVIE-19K-135-2811576-00

PATIENT
  Age: 63 Year
  Sex: Female

DRUGS (3)
  1. HUMIRA [Suspect]
     Active Substance: ADALIMUMAB
     Indication: RHEUMATOID ARTHRITIS
     Route: 058
     Dates: start: 20101015, end: 201903
  2. HUMIRA [Suspect]
     Active Substance: ADALIMUMAB
     Route: 058
     Dates: start: 201904
  3. DAIVOBET [Concomitant]
     Active Substance: BETAMETHASONE DIPROPIONATE\CALCIPOTRIENE
     Indication: PSORIASIS
     Dosage: WHEN NEEDED
     Route: 061
     Dates: start: 2017

REACTIONS (11)
  - Psoriasis [Recovering/Resolving]
  - Viral test positive [Not Recovered/Not Resolved]
  - Chest discomfort [Recovered/Resolved]
  - Angina pectoris [Recovered/Resolved]
  - Ischaemic cardiomyopathy [Not Recovered/Not Resolved]
  - Angina pectoris [Recovered/Resolved]
  - Blood pressure increased [Recovered/Resolved]
  - Intervertebral disc protrusion [Recovered/Resolved]
  - Hyperhidrosis [Not Recovered/Not Resolved]
  - Palpitations [Recovered/Resolved]
  - Palpitations [Recovered/Resolved]

NARRATIVE: CASE EVENT DATE: 201804
